FAERS Safety Report 18356102 (Version 1)
Quarter: 2020Q4

REPORT INFORMATION
  Report Type: Spontaneous
  Country: FR (occurrence: FR)
  Receive Date: 20201007
  Receipt Date: 20201007
  Transmission Date: 20210114
  Serious: Yes (Death, Other)
  Sender: FDA-Public Use
  Company Number: FR-GLAXOSMITHKLINE-FR2020188711

PATIENT

DRUGS (41)
  1. NICOTINELL [Suspect]
     Active Substance: NICOTINE
     Indication: SMOKING CESSATION THERAPY
     Dosage: UNK
     Route: 065
  2. NICORETTE PATCH (NICOTINE) [Suspect]
     Active Substance: NICOTINE
     Indication: SMOKING CESSATION THERAPY
     Dosage: UNK
     Route: 065
  3. NICOTINE. [Suspect]
     Active Substance: NICOTINE
     Indication: SMOKING CESSATION THERAPY
     Dosage: UNK
     Route: 065
  4. NICOTINELL [Suspect]
     Active Substance: NICOTINE
     Dosage: UNK
     Route: 065
  5. NICOPATCH [Suspect]
     Active Substance: NICOTINE
     Dosage: 7 MG/24H
     Route: 065
  6. NICORETTE PATCH (NICOTINE) [Suspect]
     Active Substance: NICOTINE
     Indication: SMOKING CESSATION THERAPY
     Dosage: 25 MG/16H
     Route: 065
  7. NICORETTE [Suspect]
     Active Substance: NICOTINE
     Indication: SMOKING CESSATION THERAPY
     Dosage: UNK
     Route: 065
  8. NICORETTE MICROTAB [Suspect]
     Active Substance: NICOTINE
     Indication: SMOKING CESSATION THERAPY
     Dosage: UNK
     Route: 065
  9. NIQUITIN [Suspect]
     Active Substance: NICOTINE
     Indication: PRODUCT USED FOR UNKNOWN INDICATION
     Dosage: UNK
     Route: 065
  10. NIQUITIN [Suspect]
     Active Substance: NICOTINE
     Dosage: UNK
     Route: 065
  11. NICOTINE. [Suspect]
     Active Substance: NICOTINE
     Dosage: UNK
     Route: 065
  12. NICOTINE. [Suspect]
     Active Substance: NICOTINE
     Dosage: 14 MG/24H
     Route: 065
  13. NICOTINE. [Suspect]
     Active Substance: NICOTINE
     Indication: SMOKING CESSATION THERAPY
     Dosage: 21 MG/24H
     Route: 065
  14. NIQUITIN [Suspect]
     Active Substance: NICOTINE
     Dosage: 14 MG/24H
     Route: 065
  15. NIQUITIN [Suspect]
     Active Substance: NICOTINE
     Dosage: UNK
     Route: 065
  16. NIQUITIN [Suspect]
     Active Substance: NICOTINE
     Dosage: UNK
     Route: 065
  17. NICOTINELL [Suspect]
     Active Substance: NICOTINE
     Indication: SMOKING CESSATION THERAPY
     Dosage: UNK
     Route: 065
  18. NICORETTE [Suspect]
     Active Substance: NICOTINE
     Indication: SMOKING CESSATION THERAPY
     Dosage: UNK
     Route: 065
  19. NICORETTE [Suspect]
     Active Substance: NICOTINE
     Indication: SMOKING CESSATION THERAPY
     Dosage: UNK
     Route: 065
  20. NICORETTE [Suspect]
     Active Substance: NICOTINE
     Indication: SMOKING CESSATION THERAPY
     Dosage: UNK
     Route: 065
  21. NIQUITIN [Suspect]
     Active Substance: NICOTINE
     Indication: SMOKING CESSATION THERAPY
     Dosage: 21 MG/24H
     Route: 065
  22. NICOTINELL [Suspect]
     Active Substance: NICOTINE
     Dosage: UNK
     Route: 065
  23. NICOTINE. [Suspect]
     Active Substance: NICOTINE
     Indication: SMOKING CESSATION THERAPY
     Dosage: 1,5 MG
     Route: 065
  24. NICORETTE [Suspect]
     Active Substance: NICOTINE
     Indication: SMOKING CESSATION THERAPY
     Dosage: UNK
     Route: 065
  25. NICORETTE MICROTAB [Suspect]
     Active Substance: NICOTINE
     Indication: SMOKING CESSATION THERAPY
     Dosage: UNK
     Route: 065
  26. NICOTINELL [Suspect]
     Active Substance: NICOTINE
     Dosage: 14 MG/24H
     Route: 065
  27. NICOTINE. [Suspect]
     Active Substance: NICOTINE
     Dosage: 7 MG/24H
     Route: 065
  28. NICOPATCH [Suspect]
     Active Substance: NICOTINE
     Indication: SMOKING CESSATION THERAPY
     Dosage: 21 MG/24H
     Route: 065
  29. NICORETTE [Suspect]
     Active Substance: NICOTINE
     Indication: SMOKING CESSATION THERAPY
     Dosage: UNK
     Route: 065
  30. NICOTINELL [Suspect]
     Active Substance: NICOTINE
     Dosage: 7 MG/24H
     Route: 065
  31. NICOTINE. [Suspect]
     Active Substance: NICOTINE
     Dosage: UNK
     Route: 065
  32. NICOTINELL [Suspect]
     Active Substance: NICOTINE
     Indication: SMOKING CESSATION THERAPY
     Dosage: UNK
     Route: 065
  33. NICOPATCH [Suspect]
     Active Substance: NICOTINE
     Dosage: 14 MG/24H
     Route: 065
  34. NICORETTE [Suspect]
     Active Substance: NICOTINE
     Indication: SMOKING CESSATION THERAPY
     Dosage: UNK
     Route: 065
  35. NICOTINELL [Suspect]
     Active Substance: NICOTINE
     Indication: SMOKING CESSATION THERAPY
     Dosage: 21 MG/24H
     Route: 065
  36. NIQUITIN [Suspect]
     Active Substance: NICOTINE
     Indication: SMOKING CESSATION THERAPY
     Dosage: UNK
     Route: 065
  37. NIQUITIN [Suspect]
     Active Substance: NICOTINE
     Indication: SMOKING CESSATION THERAPY
     Dosage: UNK
     Route: 065
  38. NICOTINE. [Suspect]
     Active Substance: NICOTINE
     Dosage: 1,5 MG
     Route: 065
  39. NICORETTE PATCH [Suspect]
     Active Substance: NICOTINE
     Indication: SMOKING CESSATION THERAPY
     Dosage: UNK
     Route: 065
  40. NICORETTE [Suspect]
     Active Substance: NICOTINE
     Indication: SMOKING CESSATION THERAPY
     Dosage: UNK
     Route: 065
  41. NIQUITIN [Suspect]
     Active Substance: NICOTINE
     Dosage: 7 MG/24H
     Route: 065

REACTIONS (1)
  - Death [Fatal]

NARRATIVE: CASE EVENT DATE: 2020
